FAERS Safety Report 25320008 (Version 1)
Quarter: 2025Q2

REPORT INFORMATION
  Report Type: Spontaneous
  Country: US (occurrence: US)
  Receive Date: 20250515
  Receipt Date: 20250515
  Transmission Date: 20250717
  Serious: No
  Sender: Unknown Manufacturer
  Company Number: US-MIRUM PHARMACEUTICALS, INC.-US-MIR-24-00364

PATIENT
  Sex: Male

DRUGS (1)
  1. CHOLBAM [Suspect]
     Active Substance: CHOLIC ACID
     Indication: Product used for unknown indication
     Route: 065
     Dates: start: 202309, end: 20240502

REACTIONS (2)
  - Cholelithiasis [Unknown]
  - Abdominal pain [Unknown]
